FAERS Safety Report 12924264 (Version 33)
Quarter: 2019Q4

REPORT INFORMATION
  Report Type: Report from Study
  Country: CO (occurrence: CO)
  Receive Date: 20161109
  Receipt Date: 20191230
  Transmission Date: 20200122
  Serious: Yes (Other)
  Sender: FDA-Public Use
  Company Number: CO-SA-2016SA200782

PATIENT
  Age: 55 Year
  Sex: Male
  Weight: 61 kg

DRUGS (5)
  1. ALEMTUZUMAB [Suspect]
     Active Substance: ALEMTUZUMAB
     Dosage: 12 MG, QD
     Route: 041
     Dates: start: 20151028, end: 20151101
  2. BACLOFEN. [Concomitant]
     Active Substance: BACLOFEN
     Indication: MUSCLE SPASTICITY
  3. ALEMTUZUMAB [Suspect]
     Active Substance: ALEMTUZUMAB
     Indication: MULTIPLE SCLEROSIS
     Dosage: 12 MG, QD
     Route: 041
     Dates: start: 20161010, end: 20161012
  4. BACLOFEN. [Concomitant]
     Active Substance: BACLOFEN
     Indication: MUSCLE RELAXANT THERAPY
     Dosage: UNK UNK,QD
     Route: 048
     Dates: start: 201610
  5. GABAPENTIN. [Concomitant]
     Active Substance: GABAPENTIN
     Indication: NEURALGIA
     Dosage: UNK UNK,QD
     Route: 048

REACTIONS (27)
  - Leukopenia [Recovered/Resolved]
  - Eosinophilia [Recovered/Resolved]
  - Neutrophil percentage increased [Recovered/Resolved]
  - Haematocrit increased [Recovered/Resolved]
  - Haematuria [Not Recovered/Not Resolved]
  - White blood cell count increased [Recovered/Resolved]
  - Lymphocyte percentage decreased [Recovered/Resolved]
  - Urobilinogen urine increased [Recovered/Resolved]
  - Neutrophil count decreased [Recovered/Resolved]
  - Monocyte percentage increased [Recovered/Resolved]
  - Bacterial test positive [Recovered/Resolved]
  - Haemoglobin increased [Recovered/Resolved]
  - Leukocyturia [Not Recovered/Not Resolved]
  - Blood thyroid stimulating hormone increased [Not Recovered/Not Resolved]
  - Bacteriuria [Recovered/Resolved]
  - Lymphopenia [Recovered/Resolved]
  - Protein urine present [Recovered/Resolved]
  - Crystalluria [Not Recovered/Not Resolved]
  - Alanine aminotransferase increased [Unknown]
  - Crystal urine present [Recovered/Resolved]
  - Urinary tract infection bacterial [Recovered/Resolved]
  - Neutrophil count increased [Recovered/Resolved]
  - Monocyte count increased [Recovered/Resolved]
  - Blood creatinine decreased [Recovered/Resolved]
  - Crystal urine present [Recovered/Resolved]
  - Lymphocyte count decreased [Not Recovered/Not Resolved]
  - Stomatitis [Unknown]

NARRATIVE: CASE EVENT DATE: 20161015
